FAERS Safety Report 9927517 (Version 5)
Quarter: 2014Q2

REPORT INFORMATION
  Report Type: Spontaneous
  Country: JP (occurrence: JP)
  Receive Date: 20140227
  Receipt Date: 20140409
  Transmission Date: 20141212
  Serious: Yes (Death, Life-Threatening, Hospitalization, Other)
  Sender: FDA-Public Use
  Company Number: JP-AMGEN-JPNSP2014013738

PATIENT
  Age: 77 Year
  Sex: Female
  Weight: 42 kg

DRUGS (7)
  1. ENBREL [Suspect]
     Indication: RHEUMATOID ARTHRITIS
     Dosage: 25 MG, WEEKLY
     Route: 058
     Dates: start: 20120606, end: 20140212
  2. SIGMART [Concomitant]
     Dosage: 15 MG, 3X/DAY
     Route: 048
  3. LANSOPRAZOLE [Concomitant]
     Dosage: 15 MG, 1X/DAY
     Route: 048
  4. SUNRYTHM [Concomitant]
     Dosage: 100 MG, 2X/DAY
     Route: 048
  5. FERROMIA [Concomitant]
     Dosage: 100 MG, 2X/DAY
     Route: 048
  6. LOXONIN [Concomitant]
     Dosage: 120 MG, 2X/DAY
     Route: 048
  7. ALLELOCK [Concomitant]
     Dosage: 10 MG, 2X/DAY
     Route: 048

REACTIONS (4)
  - Metastases to lymph nodes [Fatal]
  - Metastases to lung [Fatal]
  - Pancreatic carcinoma [Fatal]
  - Jaundice [Unknown]
